FAERS Safety Report 9767414 (Version 2)
Quarter: 2013Q4

REPORT INFORMATION
  Report Type: Report from Study
  Country: CA (occurrence: CA)
  Receive Date: 20131217
  Receipt Date: 20131217
  Transmission Date: 20140711
  Serious: Yes (Hospitalization)
  Sender: FDA-Public Use
  Company Number: CA-ASTELLAS-2011US004675

PATIENT
  Age: 72 Year
  Sex: Male

DRUGS (15)
  1. TACROLIMUS MR4 CAPSULES [Suspect]
     Indication: RENAL TRANSPLANT
     Dosage: 8 MG, UID/QD
     Route: 048
     Dates: start: 20110413
  2. AMLODIPINE [Concomitant]
     Indication: PRODUCT USED FOR UNKNOWN INDICATION
     Dosage: 10 MG, UID/QD
     Route: 048
  3. CELLCEPT [Concomitant]
     Indication: PRODUCT USED FOR UNKNOWN INDICATION
     Dosage: 500 MG, BID
     Route: 048
  4. VITAMIN D [Concomitant]
     Indication: PRODUCT USED FOR UNKNOWN INDICATION
     Dosage: 1000 U, UID/QD
     Route: 048
  5. REPLAVITE [Concomitant]
     Indication: PRODUCT USED FOR UNKNOWN INDICATION
     Dosage: 1 DF, UID/QD
     Route: 048
  6. PHOSPHATE NOVARTIS [Concomitant]
     Indication: PRODUCT USED FOR UNKNOWN INDICATION
     Dosage: 500 MG, QID
     Route: 048
  7. MAGLUCATE [Concomitant]
     Indication: PRODUCT USED FOR UNKNOWN INDICATION
     Dosage: 500 MG, TID
     Route: 048
  8. PREDNISONE [Concomitant]
     Indication: PRODUCT USED FOR UNKNOWN INDICATION
     Dosage: 10 MG, UID/QD
     Route: 048
  9. NYSTATIN [Concomitant]
     Indication: PRODUCT USED FOR UNKNOWN INDICATION
     Dosage: 1 ML, BID
     Route: 048
  10. PANTOLOC [Concomitant]
     Indication: PRODUCT USED FOR UNKNOWN INDICATION
     Dosage: 40 MG, UID/QD
     Route: 048
  11. BISOPROLOL [Concomitant]
     Indication: PRODUCT USED FOR UNKNOWN INDICATION
     Dosage: 5 MG, UID/QD
     Route: 048
  12. ATORVASTATIN [Concomitant]
     Indication: PRODUCT USED FOR UNKNOWN INDICATION
     Dosage: 40 MG, UID/QD
     Route: 048
  13. INSULIN NPH [Concomitant]
     Indication: PRODUCT USED FOR UNKNOWN INDICATION
     Dosage: 26 U AM, 6 U PM
     Route: 058
  14. INSULIN [Concomitant]
     Indication: PRODUCT USED FOR UNKNOWN INDICATION
     Dosage: UNK
     Route: 058
  15. ASPIRIN [Concomitant]
     Indication: PRODUCT USED FOR UNKNOWN INDICATION
     Dosage: 81 MG, UID/QD
     Route: 048

REACTIONS (1)
  - Pericarditis [Recovered/Resolved]
